FAERS Safety Report 7989899-X (Version None)
Quarter: 2011Q4

REPORT INFORMATION
  Report Type: 
  Country: None (occurrence: None)
  Receive Date: 20111219
  Receipt Date: 20110407
  Transmission Date: 20120403
  Serious: No
  Sender: FDA-Public Use
  Company Number: US-ASTRAZENECA-2011SE19861

PATIENT
  Age: 65 Year
  Sex: Female
  Weight: 47.6 kg

DRUGS (4)
  1. CO-Q-10 [Concomitant]
  2. CRESTOR [Suspect]
     Route: 048
     Dates: start: 20110301
  3. VITAMIN TAB [Concomitant]
  4. ASPIRIN [Concomitant]

REACTIONS (2)
  - MUSCLE SPASMS [None]
  - MOBILITY DECREASED [None]
